FAERS Safety Report 8831895 (Version 3)
Quarter: 2016Q4

REPORT INFORMATION
  Report Type: Spontaneous
  Country: US (occurrence: US)
  Receive Date: 20121009
  Receipt Date: 20161027
  Transmission Date: 20170207
  Serious: Yes (Other)
  Sender: FDA-Public Use
  Company Number: US-BAYER-2012-103016

PATIENT
  Age: 33 Year
  Sex: Female

DRUGS (1)
  1. MIRENA [Suspect]
     Active Substance: LEVONORGESTREL
     Dosage: 20 MCG/24HR, CONT
     Route: 015
     Dates: start: 201207, end: 201410

REACTIONS (5)
  - Papilloedema [None]
  - Benign intracranial hypertension [None]
  - Headache [None]
  - Trigeminal nerve disorder [None]
  - Vision blurred [None]

NARRATIVE: CASE EVENT DATE: 201409
